FAERS Safety Report 17202007 (Version 1)
Quarter: 2019Q4

REPORT INFORMATION
  Report Type: Spontaneous
  Country: DE (occurrence: DE)
  Receive Date: 20191226
  Receipt Date: 20191226
  Transmission Date: 20200122
  Serious: Yes (Hospitalization)
  Sender: FDA-Public Use
  Company Number: DE-PFIZER INC-2019550188

PATIENT
  Age: 29 Year
  Sex: Male

DRUGS (7)
  1. SERTRALINE HCL [Suspect]
     Active Substance: SERTRALINE HYDROCHLORIDE
     Dosage: UNK
     Route: 065
     Dates: start: 20190407
  2. ZOPICLON 1A PHARMA [Suspect]
     Active Substance: ZOPICLONE
     Dosage: UNK
     Route: 065
     Dates: end: 20190628
  3. TRIMIPRAMINE [Concomitant]
     Active Substance: TRIMIPRAMINE
     Dosage: UNK
     Route: 065
     Dates: start: 20190627
  4. PIPAMPERONE [Concomitant]
     Active Substance: PIPAMPERONE
     Dosage: UNK
     Route: 065
     Dates: start: 20190627
  5. ZOPICLON 1A PHARMA [Suspect]
     Active Substance: ZOPICLONE
     Dosage: 7.5 MG, UNK
     Route: 065
     Dates: start: 20181015, end: 20181112
  6. ZOPICLON 1A PHARMA [Suspect]
     Active Substance: ZOPICLONE
     Dosage: 3.5 MG, UNK
     Route: 065
     Dates: start: 20190527, end: 20190528
  7. OLANZAPINE. [Concomitant]
     Active Substance: OLANZAPINE
     Dosage: UNK
     Route: 065
     Dates: start: 20190627

REACTIONS (5)
  - Anxiety [Unknown]
  - Sleep disorder [Unknown]
  - Nightmare [Unknown]
  - Mood altered [Unknown]
  - Hallucination [Unknown]
